FAERS Safety Report 8756512 (Version 2)
Quarter: 2012Q4

REPORT INFORMATION
  Report Type: Spontaneous
  Country: US (occurrence: None)
  Receive Date: 20120814
  Receipt Date: 20120822
  Transmission Date: 20130627
  Serious: Yes (Hospitalization, Other)
  Sender: FDA-Public Use
  Company Number: 2012AP002350

PATIENT
  Age: 25 Year
  Sex: Male

DRUGS (9)
  1. CYCLOSPORINE [Suspect]
     Indication: IMMUNOSUPPRESSANT DRUG THERAPY
  2. CYCLOPHOSPHAMIDE [Suspect]
     Indication: STEM CELL TRANSPLANT
  3. CIDOFOVIR [Suspect]
     Indication: ADENOVIRUS INFECTION
  4. CYCLOPHOSPHAMIDE [Concomitant]
  5. RITUXIMAB [Concomitant]
  6. ETOPOSIDE [Concomitant]
  7. DOXORUBICIN [Concomitant]
  8. FLUDARABINE [Concomitant]
  9. CORTICOSTEROIDS [Concomitant]

REACTIONS (9)
  - Engraftment syndrome [None]
  - Cough [None]
  - Cystitis haemorrhagic [None]
  - Ureteral disorder [None]
  - Viraemia [None]
  - Tubulointerstitial nephritis [None]
  - Adenovirus infection [None]
  - Toxicity to various agents [None]
  - Renal failure acute [None]
